FAERS Safety Report 5297512-8 (Version None)
Quarter: 2007Q2

REPORT INFORMATION
  Report Type: 
  Country: None (occurrence: None)
  Receive Date: 20070409
  Receipt Date: 20070330
  Transmission Date: 20071010
  Serious: Yes (Disabling, Other)
  Sender: FDA-Public Use
  Company Number: GXKR2007GB02445

PATIENT
  Age: 17 Year
  Sex: Female
  Weight: 57 kg

DRUGS (2)
  1. METRONIDAZOLE [Suspect]
     Dosage: 2 G, ORAL
     Route: 048
     Dates: start: 20070226, end: 20070226
  2. ALCOHOL(ETHANOL) [Suspect]

REACTIONS (9)
  - COORDINATION ABNORMAL [None]
  - DRUG INTERACTION [None]
  - FLUSHING [None]
  - HEADACHE [None]
  - NAUSEA [None]
  - PALPITATIONS [None]
  - SOMNOLENCE [None]
  - TACHYCARDIA [None]
  - VISUAL DISTURBANCE [None]
